FAERS Safety Report 9239396 (Version 3)
Quarter: 2013Q2

REPORT INFORMATION
  Report Type: Report from Study
  Country: US (occurrence: US)
  Receive Date: 20130418
  Receipt Date: 20130515
  Transmission Date: 20140414
  Serious: Yes (Death, Hospitalization, Other)
  Sender: FDA-Public Use
  Company Number: US-ACTELION-A-US2013-81865

PATIENT
  Age: 54 Year
  Sex: Male

DRUGS (4)
  1. TRACLEER [Suspect]
     Indication: PULMONARY ARTERIAL HYPERTENSION
     Dosage: UNK
     Route: 048
     Dates: end: 20130407
  2. FLOLAN [Concomitant]
  3. REMODULIN [Concomitant]
  4. SILDENAFIL [Concomitant]

REACTIONS (4)
  - Cardiac arrest [Fatal]
  - Sepsis [Fatal]
  - Endotracheal intubation [Unknown]
  - Loss of consciousness [Unknown]
